FAERS Safety Report 20323493 (Version 1)
Quarter: 2022Q1

REPORT INFORMATION
  Report Type: Spontaneous
  Country: US (occurrence: None)
  Receive Date: 20220111
  Receipt Date: 20220111
  Transmission Date: 20220423
  Serious: No
  Sender: FDA-Public Use
  Company Number: None

PATIENT
  Age: 39 Year
  Sex: Female

DRUGS (2)
  1. BUPROPION [Suspect]
     Active Substance: BUPROPION
     Indication: Depression
     Dosage: FREQUENCY : DAILY;?
     Route: 048
     Dates: start: 20170925, end: 20180619
  2. BUPROPION [Concomitant]
     Active Substance: BUPROPION
     Dates: start: 20170925, end: 20180619

REACTIONS (3)
  - Drug ineffective [None]
  - Depression [None]
  - Sexual dysfunction [None]

NARRATIVE: CASE EVENT DATE: 20180619
